FAERS Safety Report 8136653-4 (Version None)
Quarter: 2012Q1

REPORT INFORMATION
  Report Type: 
  Country: None (occurrence: None)
  Receive Date: 20120214
  Receipt Date: 20120207
  Transmission Date: 20120608
  Serious: No
  Sender: FDA-Public Use
  Company Number: US-B.I. PHARMACEUTICALS,INC./RIDGEFIELD-2012-BP-01389BP

PATIENT
  Sex: Female
  Weight: 61.23 kg

DRUGS (3)
  1. LORAZEPAM [Concomitant]
     Indication: ANXIETY
     Route: 048
  2. TRAMADOL HCL [Concomitant]
     Indication: ARTHRALGIA
     Route: 048
  3. MIRAPEX [Suspect]
     Indication: PARKINSON'S DISEASE
     Dosage: 0.75 MG
     Route: 048
     Dates: start: 20120120, end: 20120127

REACTIONS (2)
  - DYSKINESIA [None]
  - NERVOUSNESS [None]
